FAERS Safety Report 22837691 (Version 2)
Quarter: 2023Q4

REPORT INFORMATION
  Report Type: Spontaneous
  Country: SE (occurrence: SE)
  Receive Date: 20230818
  Receipt Date: 20231012
  Transmission Date: 20240110
  Serious: Yes (Other)
  Sender: FDA-Public Use
  Company Number: None

PATIENT

DRUGS (2)
  1. EPIDUO [Suspect]
     Active Substance: ADAPALENE\BENZOYL PEROXIDE
     Indication: Acne
     Dosage: 1 DOSAGE FORM, QD
     Dates: start: 20230707, end: 20230709
  2. AZELAIC ACID [Concomitant]
     Active Substance: AZELAIC ACID
     Indication: Acne
     Dosage: 1 DOSAGE FORM, BID
     Route: 065
     Dates: start: 20230710, end: 20230723

REACTIONS (6)
  - Rash [Not Recovered/Not Resolved]
  - Sensitive skin [Not Recovered/Not Resolved]
  - Acne [Not Recovered/Not Resolved]
  - Pruritus [Not Recovered/Not Resolved]
  - Erythema [Not Recovered/Not Resolved]
  - Skin burning sensation [Not Recovered/Not Resolved]

NARRATIVE: CASE EVENT DATE: 20230708
